FAERS Safety Report 19079911 (Version 1)
Quarter: 2021Q2

REPORT INFORMATION
  Report Type: Spontaneous
  Country: US (occurrence: US)
  Receive Date: 20210401
  Receipt Date: 20210401
  Transmission Date: 20210717
  Serious: No
  Sender: FDA-Public Use
  Company Number: US-ORGANON-O2103USA002055

PATIENT
  Age: 27 Year
  Sex: Female
  Weight: 57.14 kg

DRUGS (1)
  1. NEXPLANON [Suspect]
     Active Substance: ETONOGESTREL
     Indication: CONTRACEPTION
     Dosage: 1 DOSAGE FORM (IMPLANT)
     Route: 059
     Dates: start: 20210211, end: 20210311

REACTIONS (9)
  - Skin irritation [Recovered/Resolved]
  - Device expulsion [Recovered/Resolved]
  - Implant site rash [Recovered/Resolved]
  - Implant site pruritus [Recovered/Resolved]
  - Chills [Recovered/Resolved]
  - Contusion [Recovered/Resolved]
  - Implant site infection [Recovered/Resolved]
  - Implant site pain [Recovered/Resolved]
  - Pyrexia [Recovered/Resolved]

NARRATIVE: CASE EVENT DATE: 20210218
